FAERS Safety Report 4772352-4 (Version None)
Quarter: 2005Q3

REPORT INFORMATION
  Report Type: 
  Country: None (occurrence: None)
  Receive Date: 20050916
  Receipt Date: 20050901
  Transmission Date: 20060218
  Serious: Yes (Death)
  Sender: FDA-Public Use
  Company Number: 2005S1004962

PATIENT
  Age: 79 Year
  Sex: Male
  Weight: 112.9457 kg

DRUGS (5)
  1. CLOZAPINE [Suspect]
     Dosage: 75 MG; HS; PO
     Route: 048
     Dates: start: 20050609, end: 20050601
  2. CLOZAPINE [Suspect]
     Dosage: 75 MG; HS; PO
     Route: 048
     Dates: start: 20050609, end: 20050601
  3. CLOZAPINE [Suspect]
     Dosage: 100 MG; HS; PO
     Route: 048
     Dates: start: 20050609, end: 20050601
  4. SERTRALINE HCL [Concomitant]
  5. HYDROCHLORIDE [Concomitant]

REACTIONS (1)
  - ABDOMINAL PAIN [None]
